FAERS Safety Report 6791421-0 (Version None)
Quarter: 2010Q2

REPORT INFORMATION
  Report Type: 
  Country: None (occurrence: None)
  Receive Date: 20100624
  Receipt Date: 20080709
  Transmission Date: 20101027
  Serious: No
  Sender: FDA-Public Use
  Company Number: US-PFIZER INC-2008057637

PATIENT
  Sex: Female
  Weight: 84.1 kg

DRUGS (5)
  1. AROMASIN [Suspect]
     Indication: BREAST CANCER
     Dates: start: 20080501
  2. VERAPAMIL [Concomitant]
  3. LIPITOR [Concomitant]
  4. REQUIP [Concomitant]
  5. ACETYLSALICYLIC ACID [Concomitant]

REACTIONS (1)
  - DIARRHOEA [None]
